FAERS Safety Report 16078264 (Version 1)
Quarter: 2019Q2

REPORT INFORMATION
  Report Type: Spontaneous
  Country: US (occurrence: US)
  Receive Date: 20190315
  Receipt Date: 20190315
  Transmission Date: 20190711
  Serious: No
  Sender: FDA-Public Use
  Company Number: None

PATIENT
  Age: 83 Year
  Sex: Male
  Weight: 104.3 kg

DRUGS (1)
  1. WARFARIN [Suspect]
     Active Substance: WARFARIN
     Indication: ATRIAL FIBRILLATION
     Route: 048
     Dates: start: 20190201, end: 20190221

REACTIONS (3)
  - Drug ineffective [None]
  - Anticoagulation drug level below therapeutic [None]
  - Product substitution issue [None]

NARRATIVE: CASE EVENT DATE: 20190222
